FAERS Safety Report 20306711 (Version 1)
Quarter: 2022Q1

REPORT INFORMATION
  Report Type: Report from Study
  Country: CO (occurrence: CO)
  Receive Date: 20220106
  Receipt Date: 20220106
  Transmission Date: 20220423
  Serious: Yes (Death, Hospitalization)
  Sender: FDA-Public Use
  Company Number: CO-JNJFOC-20211262179

PATIENT
  Age: 73 Year
  Sex: Male
  Weight: 71 kg

DRUGS (1)
  1. IMBRUVICA [Suspect]
     Active Substance: IBRUTINIB
     Indication: Chronic lymphocytic leukaemia
     Route: 048
     Dates: start: 20200327, end: 20211222

REACTIONS (6)
  - Lung infiltration [Fatal]
  - Urinary retention [Fatal]
  - Decreased appetite [Fatal]
  - Abdominal pain [Fatal]
  - Device related infection [Fatal]
  - COVID-19 [Fatal]

NARRATIVE: CASE EVENT DATE: 20211206
